FAERS Safety Report 9999954 (Version 1)
Quarter: 2014Q1

REPORT INFORMATION
  Report Type: Spontaneous
  Country: CN (occurrence: CN)
  Receive Date: 20140312
  Receipt Date: 20140312
  Transmission Date: 20141002
  Serious: Yes (Hospitalization)
  Sender: FDA-Public Use
  Company Number: PHHY2014CN026566

PATIENT
  Age: 36 Year
  Sex: Female

DRUGS (1)
  1. PREDNISONE [Suspect]
     Indication: IMMUNOSUPPRESSION
     Dosage: 40 MG, UNK

REACTIONS (3)
  - Hepatitis [Recovered/Resolved]
  - Listeriosis [Recovered/Resolved]
  - Pyrexia [Recovered/Resolved]
